FAERS Safety Report 8796815 (Version 3)
Quarter: 2013Q1

REPORT INFORMATION
  Report Type: Report from Study
  Country: CA (occurrence: CA)
  Receive Date: 20120917
  Receipt Date: 20130215
  Transmission Date: 20140127
  Serious: Yes (Hospitalization, Other)
  Sender: FDA-Public Use
  Company Number: CA-ABBOTT-12P-028-0977667-00

PATIENT
  Sex: Female
  Weight: 52 kg

DRUGS (4)
  1. HUMIRA PEN [Suspect]
     Indication: CROHN^S DISEASE
     Route: 058
     Dates: start: 20120206, end: 20120823
  2. IMURAN [Concomitant]
     Indication: IMMUNE SYSTEM DISORDER
     Route: 048
  3. DELTASONE [Concomitant]
     Indication: CROHN^S DISEASE
  4. ACEMINATOPHEN [Concomitant]
     Indication: MIGRAINE
     Dosage: UKNOWN

REACTIONS (5)
  - Crohn^s disease [Not Recovered/Not Resolved]
  - Rash [Recovered/Resolved]
  - Drug ineffective [Not Recovered/Not Resolved]
  - Intestinal obstruction [Unknown]
  - Pain [Unknown]
